FAERS Safety Report 4897052-1 (Version None)
Quarter: 2006Q1

REPORT INFORMATION
  Report Type: 
  Country: None (occurrence: None)
  Receive Date: 20060127
  Receipt Date: 20060117
  Transmission Date: 20060701
  Serious: Yes (Hospitalization)
  Sender: FDA-Public Use
  Company Number: 06H-087-0304513-00

PATIENT
  Age: 69 Year
  Sex: Male
  Weight: 64.1 kg

DRUGS (7)
  1. PRECEDEX [Suspect]
     Indication: SEDATION
     Dosage: 0.5-0.7 MCG/KG/HR
     Dates: start: 20051221, end: 20051222
  2. ASPIRIN [Concomitant]
  3. LANSOPRAZOLE [Concomitant]
  4. REBAMIPIDE (REBAMIPIDE) [Concomitant]
  5. SENNOSIDE (SENNOSIDE A) [Concomitant]
  6. NITROGLYCERIN [Concomitant]
  7. ETIZOLAM (ETIZOLAM) [Suspect]

REACTIONS (2)
  - ABDOMINAL PAIN [None]
  - CONSTIPATION [None]
